FAERS Safety Report 24070141 (Version 2)
Quarter: 2024Q3

REPORT INFORMATION
  Report Type: Report from Study
  Country: RS (occurrence: RS)
  Receive Date: 20240710
  Receipt Date: 20240710
  Transmission Date: 20241017
  Serious: No
  Sender: ROCHE
  Company Number: RS-ROCHE-3556560

PATIENT
  Age: 53 Year
  Sex: Male
  Weight: 83.0 kg

DRUGS (6)
  1. ALECTINIB [Suspect]
     Active Substance: ALECTINIB
     Indication: Non-small cell lung cancer
     Route: 048
     Dates: start: 20220411
  2. SILIMARINA [Concomitant]
     Route: 048
     Dates: start: 20200720
  3. VILANTEROL [Concomitant]
     Active Substance: VILANTEROL
     Indication: Chronic obstructive pulmonary disease
     Dosage: FREQUENCY TEXT:QD
  4. FENOTEROL [Concomitant]
     Active Substance: FENOTEROL
     Indication: Chronic obstructive pulmonary disease
  5. PANTOPRAZOLE SODIUM [Concomitant]
     Active Substance: PANTOPRAZOLE SODIUM
     Route: 048
  6. HEFEROL [Concomitant]
     Route: 048
     Dates: start: 20231006

REACTIONS (1)
  - Abdominal pain upper [Recovered/Resolved]

NARRATIVE: CASE EVENT DATE: 20240126
